FAERS Safety Report 20920524 (Version 1)
Quarter: 2022Q2

REPORT INFORMATION
  Report Type: Spontaneous
  Country: US (occurrence: None)
  Receive Date: 20220606
  Receipt Date: 20220606
  Transmission Date: 20220721
  Serious: Yes (Hospitalization)
  Sender: FDA-Public Use
  Company Number: None

PATIENT
  Age: 86 Year
  Sex: Male
  Weight: 83 kg

DRUGS (1)
  1. HYDROCHLOROTHIAZIDE [Suspect]
     Active Substance: HYDROCHLOROTHIAZIDE
     Dosage: 1 TAB  AM PO?
     Route: 048
     Dates: start: 20200919, end: 20220308

REACTIONS (2)
  - Dyspnoea [None]
  - Hyponatraemia [None]

NARRATIVE: CASE EVENT DATE: 20220308
